FAERS Safety Report 6405012-4 (Version None)
Quarter: 2009Q4

REPORT INFORMATION
  Report Type: 
  Country: None (occurrence: None)
  Receive Date: 20091019
  Receipt Date: 20091016
  Transmission Date: 20100525
  Serious: Yes (Other)
  Sender: FDA-Public Use
  Company Number: US-PFIZER INC-2009256403

PATIENT

DRUGS (2)
  1. NEURONTIN [Suspect]
     Dosage: UNK
  2. GEODON [Suspect]
     Dosage: UNK

REACTIONS (1)
  - VISUAL ACUITY REDUCED [None]
